FAERS Safety Report 11319058 (Version 4)
Quarter: 2015Q3

REPORT INFORMATION
  Report Type: Spontaneous
  Country: US (occurrence: US)
  Receive Date: 20150729
  Receipt Date: 20150909
  Transmission Date: 20151125
  Serious: Yes (Hospitalization, Other)
  Sender: FDA-Public Use
  Company Number: US-ACTELION PHARMACEUTICALS US, INC.-A-NJ2015-120508

PATIENT
  Age: 46 Year
  Sex: Female

DRUGS (15)
  1. MIRALAX [Concomitant]
     Active Substance: POLYETHYLENE GLYCOL 3350
  2. COLACE [Concomitant]
     Active Substance: DOCUSATE SODIUM
  3. OPSUMIT [Suspect]
     Active Substance: MACITENTAN
     Indication: PULMONARY HYPERTENSION
     Dosage: 10 MG, QD
     Route: 048
  4. CELLCEPT [Concomitant]
     Active Substance: MYCOPHENOLATE MOFETIL\MYCOPHENOLATE MOFETIL HYDROCHLORIDE
  5. VELETRI [Suspect]
     Active Substance: EPOPROSTENOL
     Indication: PULMONARY HYPERTENSION
     Dosage: 6.5 NG/KG, PER MIN
     Route: 042
     Dates: start: 201412
  6. SULFASALAZINE. [Concomitant]
     Active Substance: SULFASALAZINE
  7. SPIRONOLACTONE. [Concomitant]
     Active Substance: SPIRONOLACTONE
  8. LASIX [Concomitant]
     Active Substance: FUROSEMIDE
  9. BACTRIM [Concomitant]
     Active Substance: SULFAMETHOXAZOLE\TRIMETHOPRIM
  10. DIGOXIN. [Concomitant]
     Active Substance: DIGOXIN
  11. REVATIO [Concomitant]
     Active Substance: SILDENAFIL CITRATE
  12. LOVENOX [Concomitant]
     Active Substance: ENOXAPARIN SODIUM
  13. ZYVOX [Concomitant]
     Active Substance: LINEZOLID
  14. GABAPENTIN. [Concomitant]
     Active Substance: GABAPENTIN
  15. POTASSIUM [Concomitant]
     Active Substance: POTASSIUM

REACTIONS (5)
  - Device related infection [Unknown]
  - Catheter site infection [Unknown]
  - Dyspnoea [Recovering/Resolving]
  - Catheter site discharge [Unknown]
  - Pericardial excision [Unknown]

NARRATIVE: CASE EVENT DATE: 20150610
